FAERS Safety Report 7609199-7 (Version None)
Quarter: 2011Q3

REPORT INFORMATION
  Report Type: 
  Country: None (occurrence: None)
  Receive Date: 20110714
  Receipt Date: 20110701
  Transmission Date: 20111222
  Serious: Yes (Hospitalization, Other)
  Sender: FDA-Public Use
  Company Number: US-BAYER-2011-014130

PATIENT
  Age: 28 Year
  Sex: Female

DRUGS (9)
  1. DROSPIRENONE AND ETHINYL ESTRADIOL [Suspect]
     Indication: MENORRHAGIA
  2. YASMIN [Suspect]
     Indication: MENORRHAGIA
  3. YAZ [Suspect]
     Indication: MENORRHAGIA
  4. NARCOTIC; NOT SPECIFIED [Concomitant]
     Indication: PRODUCT USED FOR UNKNOWN INDICATION
  5. DROSPIRENONE AND ETHINYL ESTRADIOL [Suspect]
     Indication: ACNE
  6. ZOLOFT [Concomitant]
     Dosage: 250 MG, UNK
  7. YAZ [Suspect]
     Indication: ACNE
     Dosage: UNK
     Dates: start: 20090501, end: 20091001
  8. YASMIN [Suspect]
     Indication: ACNE
  9. SINGULAIR [Concomitant]

REACTIONS (5)
  - INJURY [None]
  - PAIN [None]
  - BILIARY DYSKINESIA [None]
  - CHOLECYSTITIS CHRONIC [None]
  - GALLBLADDER DISORDER [None]
